FAERS Safety Report 21072357 (Version 1)
Quarter: 2022Q3

REPORT INFORMATION
  Report Type: Spontaneous
  Country: US (occurrence: None)
  Receive Date: 20220712
  Receipt Date: 20220712
  Transmission Date: 20221027
  Serious: No
  Sender: FDA-Public Use
  Company Number: None

PATIENT
  Age: 75 Year
  Sex: Male
  Weight: 84.82 kg

DRUGS (4)
  1. FIRMAGON [Suspect]
     Active Substance: DEGARELIX ACETATE
     Indication: Prostate cancer
     Dosage: NJECT 80MG  SUBCUTANEOUSLY EVERY 4 WEEKS AS DIRECTED?
     Route: 058
     Dates: start: 202202
  2. FIRMAGON [Suspect]
     Active Substance: DEGARELIX ACETATE
     Indication: Bone cancer
  3. XGEVA [Suspect]
     Active Substance: DENOSUMAB
     Indication: Prostate cancer
     Dosage: INJECT 120MG  SUBCUTANEOUSLY EVERY 4 WEEKS AS DIRECTED?
     Route: 058
     Dates: start: 202202
  4. XGEVA [Suspect]
     Active Substance: DENOSUMAB
     Indication: Bone cancer

REACTIONS (3)
  - Peripheral swelling [None]
  - Ulcer [None]
  - COVID-19 [None]
